FAERS Safety Report 7523447-3 (Version None)
Quarter: 2011Q2

REPORT INFORMATION
  Report Type: 
  Country: None (occurrence: None)
  Receive Date: 20110603
  Receipt Date: 20110526
  Transmission Date: 20111010
  Serious: Yes (Death, Other)
  Sender: FDA-Public Use
  Company Number: US-CELGENEUS-163-21880-11052647

PATIENT
  Sex: Female
  Weight: 79.4 kg

DRUGS (5)
  1. ANTHRACYCLINE [Concomitant]
     Route: 065
  2. REVLIMID [Suspect]
     Dosage: 20 MILLIGRAM
     Route: 048
     Dates: start: 20110427, end: 20110508
  3. TPN [Concomitant]
     Route: 065
     Dates: start: 20110101
  4. IDARUBICIN HCL [Suspect]
     Route: 065
     Dates: start: 20110420
  5. CYTARABINE [Suspect]
     Route: 065
     Dates: start: 20110420

REACTIONS (4)
  - OEDEMA [None]
  - LETHARGY [None]
  - DISEASE PROGRESSION [None]
  - EJECTION FRACTION DECREASED [None]
